FAERS Safety Report 21688275 (Version 1)
Quarter: 2022Q4

REPORT INFORMATION
  Report Type: Spontaneous
  Country: KR (occurrence: None)
  Receive Date: 20221206
  Receipt Date: 20221206
  Transmission Date: 20230113
  Serious: Yes (Other)
  Sender: FDA-Public Use
  Company Number: 2022A397815

PATIENT
  Age: 60 Year
  Sex: Female

DRUGS (11)
  1. FASLODEX [Suspect]
     Active Substance: FULVESTRANT
     Route: 030
     Dates: start: 20171214, end: 20180212
  2. TAMOXIFEN [Suspect]
     Active Substance: TAMOXIFEN
     Route: 048
     Dates: start: 201102, end: 201601
  3. TAXOL [Concomitant]
     Active Substance: PACLITAXEL
     Dosage: L8C, PR
     Dates: start: 20160420, end: 20160920
  4. CARBOPLATIN [Concomitant]
     Active Substance: CARBOPLATIN
     Dosage: PR
     Dates: start: 20160420, end: 20160920
  5. LETROZOLE [Concomitant]
     Active Substance: LETROZOLE
     Dates: start: 20161117, end: 20170207
  6. EVEROLIMUS [Concomitant]
     Active Substance: EVEROLIMUS
     Dosage: 3L
     Dates: start: 20170317, end: 20170329
  7. EXEMESTANE [Concomitant]
     Active Substance: EXEMESTANE
     Dosage: 3L
     Dates: start: 20170317, end: 20170329
  8. CAPECITABINE [Concomitant]
     Active Substance: CAPECITABINE
     Dosage: 4L8C
     Dates: start: 20170330, end: 20170905
  9. ERIBULIN [Concomitant]
     Active Substance: ERIBULIN
     Dosage: 5L3C
     Dates: start: 20170913, end: 20171116
  10. GEMCITABINE/VINORELBINE [Concomitant]
     Dosage: 7L6C
     Dates: start: 20180319, end: 20190709
  11. CMF [Concomitant]
     Dosage: 8L8C
     Dates: start: 20180731

REACTIONS (1)
  - Malignant neoplasm progression [Unknown]
